FAERS Safety Report 15044846 (Version 1)
Quarter: 2018Q2

REPORT INFORMATION
  Report Type: Report from Study
  Country: US (occurrence: US)
  Receive Date: 20180621
  Receipt Date: 20180621
  Transmission Date: 20180711
  Serious: Yes (Hospitalization)
  Sender: FDA-Public Use
  Company Number: US-GILEAD-2018-0320175

PATIENT
  Age: 82 Year
  Sex: Female

DRUGS (5)
  1. UPTRAVI [Suspect]
     Active Substance: SELEXIPAG
     Indication: PRODUCT USED FOR UNKNOWN INDICATION
     Dosage: 1200 UG, BID
     Route: 065
  2. AMBRISENTAN [Suspect]
     Active Substance: AMBRISENTAN
     Indication: PULMONARY HYPERTENSION
     Dosage: 10 MG, QD
     Route: 065
     Dates: start: 20130726
  3. UPTRAVI [Suspect]
     Active Substance: SELEXIPAG
     Dosage: 1600 UG, BID
     Route: 065
     Dates: start: 20180402
  4. ADCIRCA [Suspect]
     Active Substance: TADALAFIL
     Dosage: 40 MG, QD
     Route: 065
  5. ADCIRCA [Suspect]
     Active Substance: TADALAFIL
     Indication: PULMONARY HYPERTENSION
     Dosage: 20 MG, BID
     Route: 065
     Dates: start: 20160914

REACTIONS (13)
  - Anxiety [Not Recovered/Not Resolved]
  - Chest discomfort [Not Recovered/Not Resolved]
  - Constipation [Not Recovered/Not Resolved]
  - Dyspnoea [Not Recovered/Not Resolved]
  - Diarrhoea [Not Recovered/Not Resolved]
  - Anaemia [Unknown]
  - Pain in extremity [Not Recovered/Not Resolved]
  - Migraine [Unknown]
  - Chest pain [Unknown]
  - Back pain [Not Recovered/Not Resolved]
  - Headache [Unknown]
  - Dyspnoea exertional [Not Recovered/Not Resolved]
  - Catheterisation cardiac [Unknown]

NARRATIVE: CASE EVENT DATE: 20180320
